FAERS Safety Report 11321992 (Version 1)
Quarter: 2015Q3

REPORT INFORMATION
  Report Type: Spontaneous
  Country: CA (occurrence: CA)
  Receive Date: 20150729
  Receipt Date: 20150729
  Transmission Date: 20151125
  Serious: Yes (Hospitalization)
  Sender: FDA-Public Use
  Company Number: CA-ROCHE-1613905

PATIENT
  Age: 75 Year
  Sex: Female

DRUGS (15)
  1. PERJETA [Suspect]
     Active Substance: PERTUZUMAB
     Indication: HER-2 POSITIVE BREAST CANCER
     Route: 042
  2. DOCETAXEL. [Suspect]
     Active Substance: DOCETAXEL
     Indication: HER-2 POSITIVE BREAST CANCER
     Route: 042
  3. BENADRYL [Concomitant]
     Active Substance: DIPHENHYDRAMINE HYDROCHLORIDE
  4. TYLENOL [Concomitant]
     Active Substance: ACETAMINOPHEN
  5. CARBOPLATIN. [Suspect]
     Active Substance: CARBOPLATIN
     Route: 042
  6. DECADRON [Concomitant]
     Active Substance: DEXAMETHASONE
  7. IMODIUM [Concomitant]
     Active Substance: LOPERAMIDE HYDROCHLORIDE
  8. STEMETIL [Concomitant]
     Active Substance: PROCHLORPERAZINE MALEATE
  9. CARBOPLATIN. [Suspect]
     Active Substance: CARBOPLATIN
     Indication: HER-2 POSITIVE BREAST CANCER
     Dosage: THERAPY DURATION: 1 DAY
     Route: 042
  10. DOCETAXEL. [Suspect]
     Active Substance: DOCETAXEL
     Dosage: THERAPY DURATION: 0 DAYS
     Route: 042
  11. ZOFRAN [Concomitant]
     Active Substance: ONDANSETRON HYDROCHLORIDE
  12. PERJETA [Suspect]
     Active Substance: PERTUZUMAB
     Dosage: THERAPY DURATION: 1 DAY
     Route: 042
  13. EMEND [Concomitant]
     Active Substance: APREPITANT
  14. HERCEPTIN [Suspect]
     Active Substance: TRASTUZUMAB
     Indication: HER-2 POSITIVE BREAST CANCER
     Route: 042
  15. HERCEPTIN [Suspect]
     Active Substance: TRASTUZUMAB
     Dosage: THERAPY DURATION: 1 DAY
     Route: 042

REACTIONS (2)
  - Hypermagnesaemia [Recovered/Resolved]
  - Hypomagnesaemia [Recovered/Resolved]
